FAERS Safety Report 17611538 (Version 1)
Quarter: 2020Q2

REPORT INFORMATION
  Report Type: Report from Study
  Country: US (occurrence: US)
  Receive Date: 20200401
  Receipt Date: 20200401
  Transmission Date: 20200713
  Serious: No
  Sender: FDA-Public Use
  Company Number: US-RETROPHIN, INC.-2020RTN00017

PATIENT
  Sex: Male

DRUGS (2)
  1. CHOLBAM [Suspect]
     Active Substance: CHOLIC ACID
     Dosage: 25 MG, 1X/DAY
  2. CHOLBAM [Suspect]
     Active Substance: CHOLIC ACID
     Indication: CEREBROHEPATORENAL SYNDROME
     Dosage: 50 MG, 1X/DAY
     Dates: start: 20191218

REACTIONS (2)
  - Constipation [Unknown]
  - Abdominal pain upper [Unknown]
